FAERS Safety Report 5863001-2 (Version None)
Quarter: 2008Q3

REPORT INFORMATION
  Report Type: 
  Country: None (occurrence: None)
  Receive Date: 20080828
  Receipt Date: 20080825
  Transmission Date: 20090109
  Serious: Yes (Congenital Anomaly, Other)
  Sender: FDA-Public Use
  Company Number: FR-AVENTIS-200813128FR

PATIENT
  Age: 32 Year
  Sex: Female

DRUGS (2)
  1. TELFAST                            /01314201/ [Suspect]
     Route: 048
     Dates: end: 20070601
  2. PROTOPIC [Suspect]
     Route: 061
     Dates: start: 20070301, end: 20080101

REACTIONS (3)
  - ABORTION INDUCED [None]
  - DRUG EXPOSURE BEFORE PREGNANCY [None]
  - MENINGOMYELOCELE [None]
